FAERS Safety Report 8702612 (Version 3)
Quarter: 2012Q4

REPORT INFORMATION
  Report Type: Report from Study
  Country: US (occurrence: US)
  Receive Date: 20120803
  Receipt Date: 20121026
  Transmission Date: 20130627
  Serious: Yes (Other)
  Sender: FDA-Public Use
  Company Number: US-BAYER-2012-076450

PATIENT
  Sex: Female

DRUGS (1)
  1. MIRENA [Suspect]
     Dosage: 20 mcg/24hr, CONT
     Route: 015
     Dates: start: 201006

REACTIONS (8)
  - Diarrhoea [None]
  - Migraine [None]
  - Pyrexia [None]
  - Dyspnoea [None]
  - Decreased appetite [None]
  - Nausea [None]
  - Back pain [None]
  - Pregnancy with contraceptive device [None]
